FAERS Safety Report 6871042-1 (Version None)
Quarter: 2010Q3

REPORT INFORMATION
  Report Type: 
  Country: None (occurrence: None)
  Receive Date: 20100723
  Receipt Date: 20100712
  Transmission Date: 20110219
  Serious: Yes (Death)
  Sender: FDA-Public Use
  Company Number: US-PFIZER INC-2008059596

PATIENT
  Sex: Male

DRUGS (3)
  1. CHANTIX [Suspect]
     Indication: SMOKING CESSATION THERAPY
     Dosage: 0.5MG/1MG UNK
     Dates: start: 20071026, end: 20071226
  2. CELEBREX [Concomitant]
     Indication: ARTHRITIS
     Dosage: UNK
     Dates: start: 20071020, end: 20071226
  3. VIAGRA [Concomitant]
     Indication: ERECTILE DYSFUNCTION
     Dosage: UNK
     Dates: start: 20001205, end: 20071226

REACTIONS (4)
  - COMPLETED SUICIDE [None]
  - GUN SHOT WOUND [None]
  - INSOMNIA [None]
  - PANIC ATTACK [None]
